FAERS Safety Report 8099601-1 (Version None)
Quarter: 2012Q1

REPORT INFORMATION
  Report Type: 
  Country: None (occurrence: None)
  Receive Date: 20120126
  Receipt Date: 20120117
  Transmission Date: 20120608
  Serious: Yes (Death, Other)
  Sender: FDA-Public Use
  Company Number: 1000027341

PATIENT
  Sex: Male

DRUGS (2)
  1. MEMANTINE HYDROCHLORIDE [Suspect]
     Dosage: ORAL; 20 MG (20 MG, 1 IN 1 D),ORAL
     Route: 048
  2. MEMANTINE HYDROCHLORIDE [Suspect]
     Dosage: ORAL; 20 MG (20 MG, 1 IN 1 D),ORAL
     Route: 048

REACTIONS (2)
  - INFECTION [None]
  - MYOCARDIAL INFARCTION [None]
